FAERS Safety Report 9170954 (Version 2)
Quarter: 2013Q1

REPORT INFORMATION
  Report Type: Spontaneous
  Country: JP (occurrence: None)
  Receive Date: 20130312
  Receipt Date: 20130318
  Transmission Date: 20140127
  Serious: Yes (Other)
  Sender: FDA-Public Use
  Company Number: PRAM20130001

PATIENT
  Sex: Male
  Weight: 40 kg

DRUGS (4)
  1. PRAMIPEXOLE DIHYDROCHLORIDE [Suspect]
     Indication: PARKINSON^S DISEASE
     Dosage: 3MG, 1 IN 1 D, ORAL
     Route: 048
  2. LEVODOPA/BENSERAZIDE HYDROCHLORIDE (LEVODOPA, BENSERAZIDE HYDROCHLORIDE) (UNKNOWN) (LEVODOPA, BENSERAZIDE HYDROCHLORIDE) [Concomitant]
  3. LANSOPRAZOLE (LANSOPRAZOLE) (UNKNOWN) (LANSOPRAZOLE) [Concomitant]
  4. DROXIDOPA (DROXIDOPA) (UNKNOWN) (DROXIDOPA) [Concomitant]

REACTIONS (5)
  - Spinal compression fracture [None]
  - Inappropriate antidiuretic hormone secretion [None]
  - Pleural effusion [None]
  - Oedema peripheral [None]
  - Scrotal oedema [None]
